FAERS Safety Report 24940728 (Version 1)
Quarter: 2025Q1

REPORT INFORMATION
  Report Type: Spontaneous
  Country: US (occurrence: US)
  Receive Date: 20250207
  Receipt Date: 20250207
  Transmission Date: 20250409
  Serious: Yes (Other)
  Sender: AJANTA PHARMA USA INC
  Company Number: US-AJANTA-2025AJA00012

PATIENT

DRUGS (8)
  1. DULOXETINE [Suspect]
     Active Substance: DULOXETINE
     Indication: Product used for unknown indication
     Route: 048
     Dates: start: 2024
  2. METFORMIN [Concomitant]
     Active Substance: METFORMIN HYDROCHLORIDE
  3. TRESIBA [Concomitant]
     Active Substance: INSULIN DEGLUDEC
  4. TYLENOL [Concomitant]
     Active Substance: ACETAMINOPHEN
  5. FINASTERIDE [Concomitant]
     Active Substance: FINASTERIDE
  6. BISOPROLOL FUMARATE\HYDROCHLOROTHIAZIDE [Concomitant]
     Active Substance: BISOPROLOL FUMARATE\HYDROCHLOROTHIAZIDE
  7. VITAMIN D NOS [Concomitant]
     Active Substance: CHOLECALCIFEROL\ERGOCALCIFEROL
  8. GABAPENTIN [Concomitant]
     Active Substance: GABAPENTIN

REACTIONS (6)
  - Diabetes mellitus inadequate control [Not Recovered/Not Resolved]
  - Fatigue [Not Recovered/Not Resolved]
  - Sleep disorder [Not Recovered/Not Resolved]
  - Headache [Not Recovered/Not Resolved]
  - Hyperhidrosis [Not Recovered/Not Resolved]
  - Dizziness [Not Recovered/Not Resolved]

NARRATIVE: CASE EVENT DATE: 20240101
